FAERS Safety Report 8600147-X (Version None)
Quarter: 2012Q3

REPORT INFORMATION
  Report Type: 
  Country: None (occurrence: None)
  Receive Date: 20120817
  Receipt Date: 20120808
  Transmission Date: 20120928
  Serious: Yes (Life-Threatening, Hospitalization, Other)
  Sender: FDA-Public Use
  Company Number: NL-AMGEN-NLDSP2012044494

PATIENT
  Age: 58 Year
  Sex: Female
  Weight: 56 kg

DRUGS (3)
  1. ENBREL [Suspect]
     Indication: RHEUMATOID ARTHRITIS
     Dosage: 50 MG, WEEKLY
     Dates: start: 20091001, end: 20110101
  2. ENBREL [Suspect]
     Dosage: 25 MG, WEEKLY
     Dates: start: 20120627
  3. PREDNISONE TAB [Concomitant]
     Dosage: UNK MG, UNK

REACTIONS (5)
  - PANCREATIC DISORDER [None]
  - METASTASES TO LYMPH NODES [None]
  - RHEUMATOID ARTHRITIS [None]
  - ADENOCARCINOMA PANCREAS [None]
  - WEIGHT DECREASED [None]
